FAERS Safety Report 17151073 (Version 2)
Quarter: 2020Q1

REPORT INFORMATION
  Report Type: Spontaneous
  Country: BR (occurrence: BR)
  Receive Date: 20191213
  Receipt Date: 20200214
  Transmission Date: 20200409
  Serious: Yes (Hospitalization)
  Sender: FDA-Public Use
  Company Number: BR-GLAXOSMITHKLINE-BR2019AMR113919

PATIENT
  Sex: Female
  Weight: 68 kg

DRUGS (1)
  1. BENLYSTA [Suspect]
     Active Substance: BELIMUMAB
     Indication: SYSTEMIC LUPUS ERYTHEMATOSUS
     Dosage: UNK
     Dates: start: 20181109

REACTIONS (5)
  - Weight fluctuation [Unknown]
  - Hernia [Unknown]
  - Mesenteric venous occlusion [Unknown]
  - Venous occlusion [Unknown]
  - Incorrect product administration duration [Unknown]
